FAERS Safety Report 15892415 (Version 1)
Quarter: 2019Q1

REPORT INFORMATION
  Report Type: Spontaneous
  Country: PL (occurrence: PL)
  Receive Date: 20190130
  Receipt Date: 20190130
  Transmission Date: 20190417
  Serious: Yes (Other)
  Sender: FDA-Public Use
  Company Number: PL-MYLANLABS-2019M1008342

PATIENT
  Age: 27 Year
  Sex: Female

DRUGS (2)
  1. METRONIDAZOLE. [Suspect]
     Active Substance: METRONIDAZOLE
     Indication: CLOSTRIDIUM DIFFICILE INFECTION
     Dosage: 500 MILLIGRAM, Q8H
  2. CIPROFLOXACIN. [Suspect]
     Active Substance: CIPROFLOXACIN
     Indication: GASTROENTERITIS SALMONELLA
     Dosage: 500 MILLIGRAM, BID (12 HOURS)

REACTIONS (2)
  - Hepatic enzyme increased [Recovered/Resolved]
  - Clostridium difficile infection [Recovered/Resolved]
